FAERS Safety Report 7139582-8 (Version None)
Quarter: 2010Q4

REPORT INFORMATION
  Report Type: 
  Country: None (occurrence: None)
  Receive Date: 20101206
  Receipt Date: 20101129
  Transmission Date: 20110411
  Serious: Yes (Hospitalization)
  Sender: FDA-Public Use
  Company Number: US-US-EMD SERONO, INC.-7029830

PATIENT
  Sex: Male
  Weight: 118 kg

DRUGS (8)
  1. REBIF [Suspect]
     Indication: MULTIPLE SCLEROSIS
     Route: 058
     Dates: start: 20100709
  2. VYTORIN [Concomitant]
     Indication: BLOOD TRIGLYCERIDES INCREASED
  3. TRAMADOL HCL [Concomitant]
     Indication: PAIN
  4. ROPINIROLE [Concomitant]
     Indication: MUSCLE SPASMS
  5. ASPIRIN [Concomitant]
     Indication: PROPHYLAXIS
  6. LISINOPRIL [Concomitant]
     Indication: HYPERTENSION
  7. LISINOPRIL [Concomitant]
     Indication: PROPHYLAXIS
  8. MOTRIN [Concomitant]
     Indication: PREMEDICATION

REACTIONS (4)
  - CHILLS [None]
  - INJECTION SITE ERYTHEMA [None]
  - PAIN [None]
  - PANCREATITIS CHRONIC [None]
